FAERS Safety Report 16730816 (Version 1)
Quarter: 2019Q3

REPORT INFORMATION
  Report Type: Spontaneous
  Country: US (occurrence: US)
  Receive Date: 20190822
  Receipt Date: 20190822
  Transmission Date: 20191005
  Serious: Yes (Other)
  Sender: FDA-Public Use
  Company Number: US-SUNOVION-2019SUN003449

PATIENT
  Sex: Female
  Weight: 104.31 kg

DRUGS (2)
  1. APTIOM [Suspect]
     Active Substance: ESLICARBAZEPINE ACETATE
     Dosage: 2400 MG, QD (800MG IN THE AM AND 1600MG IN THE EVENING)
     Route: 048
  2. APTIOM [Suspect]
     Active Substance: ESLICARBAZEPINE ACETATE
     Indication: SEIZURE
     Dosage: UNK
     Route: 048

REACTIONS (6)
  - Overdose [Unknown]
  - Seizure [Unknown]
  - Memory impairment [Unknown]
  - Product dose omission [Unknown]
  - Maternal exposure during pregnancy [Unknown]
  - Off label use [Unknown]
